FAERS Safety Report 6570371-9 (Version None)
Quarter: 2010Q1

REPORT INFORMATION
  Report Type: 
  Country: None (occurrence: None)
  Receive Date: 20100204
  Receipt Date: 20100128
  Transmission Date: 20100710
  Serious: Yes (Other)
  Sender: FDA-Public Use
  Company Number: US-MERCK-1002USA00074

PATIENT
  Age: 58 Year
  Sex: Female

DRUGS (1)
  1. FOSAMAX [Suspect]
     Indication: OSTEOPOROSIS
     Route: 048

REACTIONS (3)
  - FALL [None]
  - FEMUR FRACTURE [None]
  - PATHOLOGICAL FRACTURE [None]
